FAERS Safety Report 9114409 (Version 1)
Quarter: 2013Q1

REPORT INFORMATION
  Report Type: Spontaneous
  Country: US (occurrence: US)
  Receive Date: 20130208
  Receipt Date: 20130208
  Transmission Date: 20140127
  Serious: Yes (Hospitalization, Other)
  Sender: FDA-Public Use
  Company Number: US-ELI_LILLY_AND_COMPANY-US201301010129

PATIENT
  Age: 54 Year
  Sex: Female

DRUGS (3)
  1. HUMALOG LISPRO [Suspect]
     Indication: TYPE 1 DIABETES MELLITUS
     Dosage: 11 U, EACH MORNING
     Dates: start: 20121121
  2. HUMALOG LISPRO [Suspect]
     Dosage: 10 U, QD
     Dates: start: 20121121
  3. HUMALOG LISPRO [Suspect]
     Dosage: 8 U, EACH EVENING
     Dates: start: 20121121

REACTIONS (4)
  - Diabetic ketoacidosis [Unknown]
  - Diabetic ketoacidosis [Unknown]
  - Diabetic ketoacidosis [Unknown]
  - Headache [Unknown]
